FAERS Safety Report 10647877 (Version 3)
Quarter: 2014Q4

REPORT INFORMATION
  Report Type: Spontaneous
  Country: JP (occurrence: JP)
  Receive Date: 20141212
  Receipt Date: 20141230
  Transmission Date: 20150529
  Serious: Yes (Other)
  Sender: FDA-Public Use
  Company Number: JP-BEH-2014044182

PATIENT
  Age: 63 Year
  Sex: Female
  Weight: 55 kg

DRUGS (6)
  1. ALBUMINAR 25% [Suspect]
     Active Substance: ALBUMIN (HUMAN)
     Indication: HYPOALBUMINAEMIA
     Route: 042
     Dates: start: 20140722, end: 20140723
  2. FROSEMIDE [Concomitant]
     Route: 048
  3. SALINE [Suspect]
     Active Substance: SODIUM CHLORIDE
     Dosage: DURATION: 1-2 MINUTES
     Route: 041
     Dates: start: 20140722, end: 20140723
  4. FERRUM [Concomitant]
     Active Substance: FERROUS FUMARATE
     Route: 048
  5. FESIN [Suspect]
     Active Substance: IRON SUCROSE
     Indication: ANAEMIA
     Dosage: 10% TZ 20ML + FESIN 1.4, 20ML.
     Route: 042
     Dates: start: 20140723, end: 20140723
  6. ALL OTHER THERAPEUTIC PRODUCTS [Concomitant]
     Active Substance: UNSPECIFIED INGREDIENT

REACTIONS (6)
  - Feeling hot [Recovered/Resolved]
  - Cough [Recovered/Resolved]
  - Flushing [Recovered/Resolved]
  - Angioedema [Recovered/Resolved]
  - Dyspnoea [Recovered/Resolved]
  - Hypersensitivity [Recovered/Resolved]

NARRATIVE: CASE EVENT DATE: 20140723
